FAERS Safety Report 16982266 (Version 1)
Quarter: 2019Q4

REPORT INFORMATION
  Report Type: Spontaneous
  Country: GB (occurrence: GB)
  Receive Date: 20191101
  Receipt Date: 20191101
  Transmission Date: 20200122
  Serious: Yes (Hospitalization)
  Sender: FDA-Public Use
  Company Number: GB-TEVA-2019-GB-1129961

PATIENT
  Age: 81 Year
  Sex: Female

DRUGS (12)
  1. BISOPROLOL [Suspect]
     Active Substance: BISOPROLOL
     Dosage: IN THE MORNING (3.75 MILLIGRAM)
  2. CASSIA [Concomitant]
     Dosage: AT NIGHT (15 MILLIGRAM PER DAY)
  3. NOVORAPID [Concomitant]
     Active Substance: INSULIN ASPART
     Dosage: 16 UNITS 9AM, 14 UNITS 12 NOON, 12 UNITS 5PM (100UNITS/ML )
  4. ATORVASTATIN [Concomitant]
     Active Substance: ATORVASTATIN
     Dosage: AT NIGHT (20 MILLIGRAM)
  5. LIDOCAINE. [Concomitant]
     Active Substance: LIDOCAINE
     Dosage: AT NIGHT (1 DOSAGE FORM)
  6. WARFARIN [Concomitant]
     Active Substance: WARFARIN
     Dosage: 5MG ON MONDAY + 4MG THE REST OF THE WEEK
  7. FOLIC ACID. [Concomitant]
     Active Substance: FOLIC ACID
     Dosage: IN THE MORNING (5 MILLIGRAM)
  8. SERTRALINE [Suspect]
     Active Substance: SERTRALINE HYDROCHLORIDE
     Dosage: IN THE MORNING (100 MILLIGRAM PER DAY)
  9. PYRIDOXINE [Concomitant]
     Active Substance: PYRIDOXINE
     Dosage: 150 MILLIGRAM PER DAY
  10. HUMULIN L [Concomitant]
     Active Substance: INSULIN HUMAN
     Dosage: 12 NOON (100UNITS/ML) (14 IU)
  11. VITAMIN B COMPOUND STRONG [Concomitant]
     Active Substance: NIACINAMIDE\PYRIDOXINE HYDROCHLORIDE\RIBOFLAVIN\THIAMINE HYDROCHLORIDE
     Dosage: IN THE MORNING (1 DOSAGE FORM)
  12. LANSOPRAZOLE. [Concomitant]
     Active Substance: LANSOPRAZOLE
     Dosage: IN THE MORNING (15 MILLIGRAM)

REACTIONS (5)
  - Pneumonia aspiration [Unknown]
  - Electrocardiogram QT prolonged [Recovered/Resolved]
  - Somnolence [Unknown]
  - Productive cough [Unknown]
  - Blood glucose decreased [Unknown]
